FAERS Safety Report 15688892 (Version 2)
Quarter: 2019Q1

REPORT INFORMATION
  Report Type: Spontaneous
  Country: US (occurrence: US)
  Receive Date: 20181205
  Receipt Date: 20190129
  Transmission Date: 20190417
  Serious: Yes (Other)
  Sender: FDA-Public Use
  Company Number: US-HORIZON-ACT-0362-2018

PATIENT
  Age: 24 Year
  Sex: Female

DRUGS (4)
  1. NEURONTIN [Concomitant]
     Active Substance: GABAPENTIN
  2. ACTIMMUNE [Suspect]
     Active Substance: INTERFERON GAMMA-1B
     Indication: OSTEOPETROSIS
     Dosage: 100 ?G, 0.5 ML TIW
     Route: 058
     Dates: start: 1996
  3. CALCITROL [Concomitant]
     Active Substance: CALCITRIOL
     Dosage: 100 ?G Q 3XWEEK
     Route: 058
  4. EFFEXOR [Concomitant]
     Active Substance: VENLAFAXINE HYDROCHLORIDE

REACTIONS (2)
  - Injection site bruising [Not Recovered/Not Resolved]
  - Stress fracture [Unknown]
